FAERS Safety Report 15354386 (Version 9)
Quarter: 2019Q3

REPORT INFORMATION
  Report Type: Spontaneous
  Country: CA (occurrence: CA)
  Receive Date: 20180906
  Receipt Date: 20190913
  Transmission Date: 20191004
  Serious: Yes (Other)
  Sender: FDA-Public Use
  Company Number: CA-CELLTRION INC.-2018CA021623

PATIENT

DRUGS (15)
  1. INFLECTRA [Interacting]
     Active Substance: INFLIXIMAB-DYYB
     Dosage: 800 MG, EVERY 0, 2, 6 WEEKS, THEN EVERY 8 WEEKS
     Route: 042
     Dates: start: 20181205
  2. FLOVENT [Concomitant]
     Active Substance: FLUTICASONE PROPIONATE
     Indication: PYODERMA GANGRENOSUM
     Dosage: UNK
  3. INFLECTRA [Interacting]
     Active Substance: INFLIXIMAB-DYYB
     Dosage: 800 MG, EVERY 0, 2, 6 WEEKS, THEN EVERY 8 WEEKS
     Route: 042
  4. INFLECTRA [Interacting]
     Active Substance: INFLIXIMAB-DYYB
     Dosage: 800 MG, EVERY 0, 2, 6 WEEKS, THEN EVERY 8 WEEKS
     Route: 042
     Dates: start: 20181010
  5. INFLECTRA [Interacting]
     Active Substance: INFLIXIMAB-DYYB
     Dosage: 800 MG, EVERY 0, 2, 6 WEEKS, THEN EVERY 8 WEEKS
     Route: 042
     Dates: start: 20190206
  6. INFLECTRA [Interacting]
     Active Substance: INFLIXIMAB-DYYB
     Indication: COLITIS ULCERATIVE
     Dosage: 800 MG, EVERY 0, 2, 6 WEEKS, THEN EVERY 8 WEEKS
     Route: 042
     Dates: start: 20180815
  7. INFLECTRA [Interacting]
     Active Substance: INFLIXIMAB-DYYB
     Dosage: 800 MG EVERY 0, 2, 6, THEN EVERY 8 WEEKS
     Route: 042
     Dates: start: 20190707
  8. INFLECTRA [Interacting]
     Active Substance: INFLIXIMAB-DYYB
     Dosage: 800 MG EVERY 0, 2, 6, THEN EVERY 8 WEEKS
     Route: 042
     Dates: start: 20190723
  9. METHOTREXATE. [Concomitant]
     Active Substance: METHOTREXATE
     Indication: COLITIS
     Dosage: UNK, WEEKLY
     Dates: start: 20180620
  10. CLOBETASOL [Concomitant]
     Active Substance: CLOBETASOL
     Indication: PYODERMA GANGRENOSUM
     Dosage: UNK
  11. INFLECTRA [Suspect]
     Active Substance: INFLIXIMAB-DYYB
     Indication: CROHN^S DISEASE
     Dosage: 800 MG, EVERY 0, 2, 6 WEEKS, THEN EVERY 8 WEEKS
     Route: 042
     Dates: start: 20180707
  12. PREDNISONE. [Concomitant]
     Active Substance: PREDNISONE
     Dosage: 70 MG, DAILY
  13. CIPROFLOXACIN. [Concomitant]
     Active Substance: CIPROFLOXACIN
     Indication: WOUND INFECTION
     Dosage: UNK (5 DAY COURSE)
     Dates: start: 20180611
  14. APO-CEFUROXIME [Interacting]
     Active Substance: CEFUROXIME AXETIL
     Indication: WOUND INFECTION
     Dosage: 500 MG, 2X/DAY (10 DAY COURSE)
     Route: 065
  15. CLINDAMYCIN. [Concomitant]
     Active Substance: CLINDAMYCIN
     Indication: WOUND INFECTION
     Dosage: UNK, (5 DAY COURSE)
     Route: 065
     Dates: start: 20180611

REACTIONS (7)
  - Therapeutic response shortened [Unknown]
  - Drug ineffective [Not Recovered/Not Resolved]
  - Blood pressure fluctuation [Unknown]
  - Drug interaction [Unknown]
  - Wound infection [Recovering/Resolving]
  - Skin ulcer [Recovering/Resolving]
  - Wound secretion [Not Recovered/Not Resolved]

NARRATIVE: CASE EVENT DATE: 2018
